FAERS Safety Report 9227395 (Version 1)
Quarter: 2013Q1

REPORT INFORMATION
  Report Type: Spontaneous
  Country: US (occurrence: None)
  Receive Date: 20121012
  Receipt Date: 20121012
  Transmission Date: 20140127
  Serious: Yes (Death)
  Sender: FDA-Public Use
  Company Number: 1000027438

PATIENT
  Age: 49 Year
  Sex: Male

DRUGS (2)
  1. LEXAPRO [Suspect]
     Indication: ANXIETY
     Dates: start: 20080114
  2. TOPROL XL (METOPROLOL) (METOPROLOL) [Concomitant]

REACTIONS (1)
  - Completed suicide [None]
